FAERS Safety Report 7131524-4 (Version None)
Quarter: 2010Q4

REPORT INFORMATION
  Report Type: 
  Country: None (occurrence: None)
  Receive Date: 20101201
  Receipt Date: 20101123
  Transmission Date: 20110411
  Serious: Yes (Hospitalization, Other)
  Sender: FDA-Public Use
  Company Number: US-B.I. PHARMACEUTICALS,INC./RIDGEFIELD-2010-DE-06523GD

PATIENT
  Age: 15 Year
  Sex: Female

DRUGS (4)
  1. TRAZODONE [Suspect]
     Route: 048
  2. CLONIDINE [Suspect]
     Route: 048
  3. QUETIAPINE [Suspect]
     Route: 048
  4. RISPERIDONE [Suspect]
     Route: 048

REACTIONS (17)
  - BUNDLE BRANCH BLOCK LEFT [None]
  - DELIRIUM [None]
  - DEPRESSED LEVEL OF CONSCIOUSNESS [None]
  - DRUG INTERACTION [None]
  - ELECTROCARDIOGRAM QT PROLONGED [None]
  - HYPOTENSION [None]
  - INCOHERENT [None]
  - MULTIPLE DRUG OVERDOSE [None]
  - OVERDOSE [None]
  - POISONING [None]
  - RESPIRATORY RATE INCREASED [None]
  - SEDATION [None]
  - SELF-MEDICATION [None]
  - SOMNOLENCE [None]
  - TACHYCARDIA [None]
  - TEARFULNESS [None]
  - UNRESPONSIVE TO STIMULI [None]
